FAERS Safety Report 21752866 (Version 3)
Quarter: 2024Q4

REPORT INFORMATION
  Report Type: Spontaneous
  Country: ES (occurrence: ES)
  Receive Date: 20221220
  Receipt Date: 20241104
  Transmission Date: 20250115
  Serious: Yes (Hospitalization)
  Sender: TEVA
  Company Number: None

PATIENT
  Age: 52 Year
  Sex: Female

DRUGS (2)
  1. CAPECITABINE [Suspect]
     Active Substance: CAPECITABINE
     Indication: Colon neoplasm
     Dosage: CAPECITABINE (1224A)
     Route: 048
     Dates: start: 20221104, end: 20221119
  2. ACETAMINOPHEN\CAFFEINE\ERGOTAMINE TARTRATE [Suspect]
     Active Substance: ACETAMINOPHEN\CAFFEINE\ERGOTAMINE TARTRATE
     Indication: Migraine
     Dosage: 20 TABLETS
     Route: 048
     Dates: start: 2000, end: 20221119

REACTIONS (1)
  - Acute myocardial infarction [Recovered/Resolved with Sequelae]

NARRATIVE: CASE EVENT DATE: 20221119
